FAERS Safety Report 15821307 (Version 4)
Quarter: 2021Q4

REPORT INFORMATION
  Report Type: Spontaneous
  Country: US (occurrence: US)
  Receive Date: 20190114
  Receipt Date: 20211116
  Transmission Date: 20220303
  Serious: Yes (Other)
  Sender: FDA-Public Use
  Company Number: US-PFIZER INC-2019016050

PATIENT
  Age: 26 Year
  Sex: Female

DRUGS (13)
  1. SOMAVERT [Suspect]
     Active Substance: PEGVISOMANT
     Indication: Acromegaly
     Dosage: 30 MG, DAILY
     Route: 058
     Dates: start: 2014
  2. SOMAVERT [Suspect]
     Active Substance: PEGVISOMANT
     Indication: Sotos^ syndrome
     Dosage: 20 MG, UNK
  3. SOMAVERT [Suspect]
     Active Substance: PEGVISOMANT
     Indication: Hypopituitarism
  4. PASIREOTIDE [Suspect]
     Active Substance: PASIREOTIDE
     Dosage: 60 MG, UNK
  5. SANDOSTATIN LAR DEPOT [Concomitant]
     Active Substance: OCTREOTIDE ACETATE
     Dosage: UNK
  6. TYLENOL [Concomitant]
     Active Substance: ACETAMINOPHEN
  7. TOZINAMERAN [Concomitant]
     Active Substance: TOZINAMERAN
     Indication: COVID-19 immunisation
  8. OXYCODONE HYDROCHLORIDE [Concomitant]
     Active Substance: OXYCODONE HYDROCHLORIDE
  9. ONDANSETRON HCL [Concomitant]
     Active Substance: ONDANSETRON HYDROCHLORIDE
  10. METFORMIN HYDROCHLORIDE [Concomitant]
     Active Substance: METFORMIN HYDROCHLORIDE
  11. NORETHINDRONE ACETATE AND ETHINYL ESTRADIOL [Concomitant]
     Active Substance: ETHINYL ESTRADIOL\NORETHINDRONE ACETATE
  12. VENLAFAXINE HCL [Concomitant]
     Active Substance: VENLAFAXINE HYDROCHLORIDE
  13. DEXTROAMPHETAMINE [Concomitant]
     Active Substance: DEXTROAMPHETAMINE

REACTIONS (7)
  - Diabetes mellitus [Unknown]
  - Insulin-like growth factor increased [Unknown]
  - Alanine aminotransferase increased [Unknown]
  - Blood growth hormone increased [Unknown]
  - Glycosylated haemoglobin increased [Unknown]
  - Bronchitis [Unknown]
  - Product dose omission issue [Unknown]
